FAERS Safety Report 10460809 (Version 2)
Quarter: 2015Q2

REPORT INFORMATION
  Report Type: Report from Study
  Country: US (occurrence: US)
  Receive Date: 20140918
  Receipt Date: 20150610
  Transmission Date: 20150821
  Serious: No
  Sender: FDA-Public Use
  Company Number: US-ELI_LILLY_AND_COMPANY-US201409002605

PATIENT
  Sex: Male

DRUGS (1)
  1. SOMATROPIN [Suspect]
     Active Substance: SOMATROPIN
     Dosage: 1.5 MG, QD
     Dates: start: 20140809

REACTIONS (1)
  - Incorrect dose administered [Unknown]
